FAERS Safety Report 6238642-3 (Version None)
Quarter: 2009Q2

REPORT INFORMATION
  Report Type: 
  Country: None (occurrence: None)
  Receive Date: 20090622
  Receipt Date: 20090612
  Transmission Date: 20091009
  Serious: Yes (Hospitalization, Other)
  Sender: FDA-Public Use
  Company Number: US-AMGEN-QUU351496

PATIENT
  Sex: Male

DRUGS (2)
  1. EPOGEN [Suspect]
     Indication: DIALYSIS
     Route: 065
  2. ARANESP [Suspect]
     Indication: DIALYSIS
     Route: 065

REACTIONS (2)
  - DRUG HYPERSENSITIVITY [None]
  - HAEMOGLOBIN DECREASED [None]
